FAERS Safety Report 24312591 (Version 2)
Quarter: 2024Q3

REPORT INFORMATION
  Report Type: Spontaneous
  Country: US (occurrence: US)
  Receive Date: 20240912
  Receipt Date: 20240923
  Transmission Date: 20241017
  Serious: Yes (Death, Hospitalization)
  Sender: TEVA
  Company Number: US-TEVA-VS-3240372

PATIENT
  Age: 42 Year
  Sex: Female

DRUGS (7)
  1. DEXAMETHASONE [Suspect]
     Active Substance: DEXAMETHASONE
     Indication: Immune effector cell-associated neurotoxicity syndrome
     Route: 065
  2. MANNITOL [Suspect]
     Active Substance: MANNITOL
     Indication: Immune effector cell-associated neurotoxicity syndrome
     Route: 065
  3. CYCLOPHOSPHAMIDE [Suspect]
     Active Substance: CYCLOPHOSPHAMIDE
     Indication: Immune effector cell-associated neurotoxicity syndrome
     Route: 065
  4. AXICABTAGENE CILOLEUCEL [Suspect]
     Active Substance: AXICABTAGENE CILOLEUCEL
     Indication: High grade B-cell lymphoma refractory
     Route: 065
  5. SILTUXIMAB [Suspect]
     Active Substance: SILTUXIMAB
     Indication: Immune effector cell-associated neurotoxicity syndrome
     Route: 065
  6. LEVETIRACETAM [Suspect]
     Active Substance: LEVETIRACETAM
     Indication: Immune effector cell-associated neurotoxicity syndrome
     Route: 065
  7. METHYLPREDNISOLONE [Suspect]
     Active Substance: METHYLPREDNISOLONE
     Indication: Immune effector cell-associated neurotoxicity syndrome
     Route: 042

REACTIONS (7)
  - Cytokine release syndrome [Not Recovered/Not Resolved]
  - Immune effector cell-associated neurotoxicity syndrome [Fatal]
  - Bradycardia [Not Recovered/Not Resolved]
  - Drug ineffective [Fatal]
  - Pulse pressure increased [Not Recovered/Not Resolved]
  - Irregular breathing [Not Recovered/Not Resolved]
  - Brain oedema [Not Recovered/Not Resolved]
